FAERS Safety Report 8275423-3 (Version None)
Quarter: 2012Q2

REPORT INFORMATION
  Report Type: 
  Country: None (occurrence: None)
  Receive Date: 20120411
  Receipt Date: 20110314
  Transmission Date: 20120825
  Serious: Yes (Hospitalization)
  Sender: FDA-Public Use
  Company Number: PHHY2011CA21890

PATIENT
  Sex: Female

DRUGS (1)
  1. ZOLEDRONOC ACID [Suspect]
     Indication: OSTEOPOROSIS
     Dosage: UNK
     Dates: start: 20100506

REACTIONS (4)
  - FALL [None]
  - APHAGIA [None]
  - LIGAMENT SPRAIN [None]
  - WRIST FRACTURE [None]
